FAERS Safety Report 19219138 (Version 1)
Quarter: 2021Q2

REPORT INFORMATION
  Report Type: Spontaneous
  Country: US (occurrence: US)
  Receive Date: 20210506
  Receipt Date: 20210506
  Transmission Date: 20210717
  Serious: No
  Sender: FDA-Public Use
  Company Number: US-ROCHE-2578782

PATIENT
  Sex: Female

DRUGS (1)
  1. ESBRIET [Suspect]
     Active Substance: PIRFENIDONE
     Indication: IDIOPATHIC PULMONARY FIBROSIS
     Route: 065
     Dates: end: 20200317

REACTIONS (5)
  - Abdominal pain [Unknown]
  - Jaundice [Unknown]
  - Pruritus [Unknown]
  - Haemorrhage [Unknown]
  - Fatigue [Unknown]
